FAERS Safety Report 19942352 (Version 2)
Quarter: 2021Q4

REPORT INFORMATION
  Report Type: Report from Study
  Country: CR (occurrence: CR)
  Receive Date: 20211011
  Receipt Date: 20211014
  Transmission Date: 20220304
  Serious: No
  Sender: FDA-Public Use
  Company Number: CR-BAYER-2021A224876

PATIENT
  Age: 16 Year
  Sex: Female

DRUGS (1)
  1. YASMIN [Suspect]
     Active Substance: DROSPIRENONE\ETHINYL ESTRADIOL
     Indication: Hormone level abnormal
     Dosage: UNK
     Route: 048
     Dates: start: 202105

REACTIONS (1)
  - Off label use [None]

NARRATIVE: CASE EVENT DATE: 20210501
